FAERS Safety Report 5921369-2 (Version None)
Quarter: 2008Q4

REPORT INFORMATION
  Report Type: 
  Country: None (occurrence: None)
  Receive Date: 20081014
  Receipt Date: 20081002
  Transmission Date: 20090506
  Serious: Yes (Hospitalization)
  Sender: FDA-Public Use
  Company Number: 004560

PATIENT
  Age: 66 Year
  Sex: Female

DRUGS (3)
  1. PLETAL [Suspect]
     Indication: CEREBRAL INFARCTION
     Dosage: 100 MG, BID, ORAL
     Route: 048
     Dates: start: 20040527, end: 20080703
  2. LIPITOR (ATROVASTATIN CALCIUM) TABLET [Concomitant]
  3. BENET (SODIUM RISEDRONAE HYDRATE) TABLET [Concomitant]

REACTIONS (1)
  - SUBARACHNOID HAEMORRHAGE [None]
